FAERS Safety Report 21099910 (Version 2)
Quarter: 2022Q3

REPORT INFORMATION
  Report Type: Report from Study
  Country: US (occurrence: US)
  Receive Date: 20220719
  Receipt Date: 20220720
  Transmission Date: 20221026
  Serious: Yes (Hospitalization)
  Sender: FDA-Public Use
  Company Number: US-GLAXOSMITHKLINE-US2022GSK095448

PATIENT

DRUGS (14)
  1. NIRAPARIB [Suspect]
     Active Substance: NIRAPARIB
     Indication: Neoplasm
     Dosage: 300 MG, QD
     Route: 048
     Dates: start: 20220608, end: 20220619
  2. FENTANYL [Concomitant]
     Active Substance: FENTANYL
     Indication: Abdominal pain
     Dosage: 50 UG, Z (PER HR)
     Dates: start: 20220514
  3. METOPROLOL [Concomitant]
     Active Substance: METOPROLOL
     Indication: Hypertension
     Dosage: 25 MG, QD
     Route: 048
     Dates: start: 2010
  4. OLANZAPINE [Concomitant]
     Active Substance: OLANZAPINE
     Indication: Nausea
     Dosage: 5 MG, PRN
     Route: 048
     Dates: start: 202204
  5. PRISTIQ EXTENDED-RELEASE [Concomitant]
     Active Substance: DESVENLAFAXINE SUCCINATE
     Indication: Depression
     Dosage: 100 MG, QD
     Route: 048
     Dates: start: 20220524
  6. SANCUSO [Concomitant]
     Active Substance: GRANISETRON
     Indication: Nausea
     Dosage: 3.1 MG, CO
     Dates: start: 20220524
  7. SPIRONOLACTONE [Concomitant]
     Active Substance: SPIRONOLACTONE
     Indication: Oedema
     Dosage: 25 MG, QD
     Route: 048
     Dates: start: 20220414
  8. OXYCODONE [Concomitant]
     Active Substance: OXYCODONE
     Indication: Abdominal pain
     Dosage: 15 MG, QID
     Route: 048
     Dates: start: 20220601
  9. SYNTHROID [Concomitant]
     Active Substance: LEVOTHYROXINE SODIUM
     Indication: Hypothyroidism
     Dosage: 15 MG
     Route: 048
  10. ALLEGRA [Concomitant]
     Active Substance: FEXOFENADINE HYDROCHLORIDE
     Indication: Multiple allergies
     Dosage: 1 DF (PILL), QD
     Route: 048
     Dates: start: 2015
  11. ALBUMIN HUMAN [Concomitant]
     Active Substance: ALBUMIN HUMAN
     Indication: Oedema peripheral
     Dosage: 100 ML, SINGLE
     Route: 042
     Dates: start: 20220608
  12. FUROSEMIDE [Concomitant]
     Active Substance: FUROSEMIDE
     Indication: Oedema peripheral
     Dosage: 10 MG, SINGLE
     Route: 042
     Dates: start: 20220608
  13. SILVER SULFADIAZENE [Concomitant]
     Active Substance: SILVER SULFADIAZINE
     Indication: Erythema
     Dosage: 1 DF(TBSP), QD
     Route: 061
     Dates: start: 20220608
  14. LEVAQUIN [Concomitant]
     Active Substance: LEVOFLOXACIN
     Indication: Pain prophylaxis
     Dosage: 500 MG, QD
     Route: 048
     Dates: start: 20220604, end: 20220606

REACTIONS (4)
  - Gastritis [Recovered/Resolved]
  - Pleural effusion [Not Recovered/Not Resolved]
  - Nausea [Not Recovered/Not Resolved]
  - Vomiting [Not Recovered/Not Resolved]

NARRATIVE: CASE EVENT DATE: 20220618
